FAERS Safety Report 19698652 (Version 1)
Quarter: 2021Q3

REPORT INFORMATION
  Report Type: Spontaneous
  Country: GB (occurrence: GB)
  Receive Date: 20210813
  Receipt Date: 20210813
  Transmission Date: 20211014
  Serious: No
  Sender: FDA-Public Use
  Company Number: GB-ALKEM LABORATORIES LIMITED-GB-ALKEM-2021-04267

PATIENT
  Age: 58 Year
  Sex: Male
  Weight: 90 kg

DRUGS (12)
  1. GLYCERYL TRINITRATE [Concomitant]
     Active Substance: NITROGLYCERIN
     Indication: PRODUCT USED FOR UNKNOWN INDICATION
     Dosage: 400 MICROGRAM (1 ? 2 SPRAYS UNDER THE TONGUE)
     Route: 065
     Dates: start: 20210505
  2. LOSARTAN. [Concomitant]
     Active Substance: LOSARTAN
     Indication: PRODUCT USED FOR UNKNOWN INDICATION
     Dosage: 25 MILLIGRAM (1 TABLET ONCE A DAY)
     Route: 065
     Dates: start: 20210528
  3. MORPHGESIC [Concomitant]
     Active Substance: MORPHINE SULFATE
     Indication: PRODUCT USED FOR UNKNOWN INDICATION
     Dosage: 2 TABLET TWICE DAILY
     Route: 065
     Dates: start: 20210528
  4. ACIDEX [Concomitant]
     Indication: PRODUCT USED FOR UNKNOWN INDICATION
     Dosage: 10 ML AFTER MEALS AND AT BEDTIME
     Route: 065
     Dates: start: 20210610
  5. PREGABALIN. [Suspect]
     Active Substance: PREGABALIN
     Indication: OTITIS EXTERNA
     Dosage: 50 MILLIGRAM
     Route: 048
  6. LANSOPRAZOLE. [Concomitant]
     Active Substance: LANSOPRAZOLE
     Indication: PRODUCT USED FOR UNKNOWN INDICATION
     Dosage: 30 MILLIGRAM, QD
     Route: 065
     Dates: start: 20210610
  7. ORAMORPH [Concomitant]
     Active Substance: MORPHINE SULFATE
     Indication: PRODUCT USED FOR UNKNOWN INDICATION
     Dosage: 2.5MLS UP TO FOUR TIMES A DAY
     Route: 065
     Dates: start: 20210528
  8. ATORVASTATIN [Concomitant]
     Active Substance: ATORVASTATIN
     Indication: PRODUCT USED FOR UNKNOWN INDICATION
     Dosage: 20 MILLIGRAM (1 TABLET ONCE A DAY TO START IN 3 MONTHS ONCE FINISHED COLCHICINE)
     Route: 065
     Dates: start: 20210528
  9. OCTASA [Concomitant]
     Active Substance: MESALAMINE
     Indication: PRODUCT USED FOR UNKNOWN INDICATION
     Dosage: ONE THREE TIMES A DAY AS PER SPECIALIST
     Route: 065
     Dates: start: 20210528
  10. VENTOLIN [Concomitant]
     Active Substance: ALBUTEROL SULFATE
     Indication: PRODUCT USED FOR UNKNOWN INDICATION
     Dosage: 1 TO 2 PUFFS UP TO FOUR TIMES DAILY AS REQUIRED
     Route: 065
     Dates: start: 20210406
  11. HYDROXOCOBALAMIN [Concomitant]
     Active Substance: HYDROXOCOBALAMIN
     Indication: PRODUCT USED FOR UNKNOWN INDICATION
     Dosage: 1 MG/ML, 3 TIMES A WEEK FOR 2 WEEK THEN 3 MONTHLY
     Route: 065
     Dates: start: 20210525
  12. OTOMIZE [Concomitant]
     Indication: PRODUCT USED FOR UNKNOWN INDICATION
     Dosage: 1 SPRAY THREE TIMES DAILY
     Route: 065
     Dates: start: 20210427

REACTIONS (2)
  - Vomiting [Recovered/Resolved]
  - Nausea [Unknown]

NARRATIVE: CASE EVENT DATE: 20210615
